FAERS Safety Report 5847609-6 (Version None)
Quarter: 2008Q3

REPORT INFORMATION
  Report Type: 
  Country: None (occurrence: None)
  Receive Date: 20080815
  Receipt Date: 20080815
  Transmission Date: 20090109
  Serious: Yes (Other)
  Sender: FDA-Public Use
  Company Number: None

PATIENT
  Sex: Female

DRUGS (1)
  1. ZOLPIDEM [Suspect]
     Indication: INSOMNIA
     Dosage: 10MG 1 TAB @ BEDTIME ORAL
     Route: 048
     Dates: start: 20080620, end: 20080705

REACTIONS (2)
  - FEELING ABNORMAL [None]
  - INDIFFERENCE [None]
